FAERS Safety Report 5313454-3 (Version None)
Quarter: 2007Q2

REPORT INFORMATION
  Report Type: 
  Country: None (occurrence: None)
  Receive Date: 20070424
  Receipt Date: 20070409
  Transmission Date: 20071010
  Serious: Yes (Hospitalization, Other)
  Sender: FDA-Public Use
  Company Number: 2007000137

PATIENT
  Age: 61 Year
  Sex: Male

DRUGS (5)
  1. TARCEVA [Suspect]
     Indication: ADENOCARCINOMA
     Dosage: 150 MG (QD), ORAL
     Route: 048
     Dates: start: 20050515
  2. BEVACIZUMAB [Suspect]
     Dates: start: 20040915, end: 20050515
  3. GEMCITABINE [Concomitant]
  4. CARBOPLATIN [Concomitant]
  5. CETUXIMAB (CETUXIMAB) [Concomitant]

REACTIONS (4)
  - ASPERGILLOSIS [None]
  - CEREBRAL ISCHAEMIA [None]
  - INFARCTION [None]
  - VASCULAR ENCEPHALOPATHY [None]
